FAERS Safety Report 8457696-7 (Version None)
Quarter: 2012Q2

REPORT INFORMATION
  Report Type: 
  Country: None (occurrence: None)
  Receive Date: 20120618
  Receipt Date: 20120618
  Transmission Date: 20120825
  Serious: No
  Sender: FDA-Public Use
  Company Number: None

PATIENT
  Sex: Female
  Weight: 61.6892 kg

DRUGS (2)
  1. TACROLIMUS [Suspect]
     Indication: RENAL TRANSPLANT
     Dosage: 2 CAPS BID BY MOUTH
     Route: 048
     Dates: start: 20050221
  2. TACROLIMUS [Suspect]
     Indication: TRANSPLANT FAILURE
     Dosage: 2 CAPS BID BY MOUTH
     Route: 048
     Dates: start: 20050221

REACTIONS (1)
  - PRODUCT SUBSTITUTION ISSUE [None]
